FAERS Safety Report 8007990-9 (Version None)
Quarter: 2011Q4

REPORT INFORMATION
  Report Type: 
  Country: None (occurrence: None)
  Receive Date: 20111227
  Receipt Date: 20111215
  Transmission Date: 20120403
  Serious: Yes (Other)
  Sender: FDA-Public Use
  Company Number: PHHY2011CA40360

PATIENT
  Sex: Female

DRUGS (3)
  1. CHEMOTHERAPEUTICS [Concomitant]
  2. PREDNISONE [Concomitant]
     Indication: PRURITUS
  3. ZOMETA [Suspect]
     Indication: LUNG NEOPLASM MALIGNANT
     Dosage: 4 MG, EVERY 4 WEEKS
     Route: 042
     Dates: start: 20110505

REACTIONS (8)
  - COUGH [None]
  - BREATH SOUNDS ABNORMAL [None]
  - BLOOD PRESSURE INCREASED [None]
  - BACK PAIN [None]
  - RASH ERYTHEMATOUS [None]
  - RASH [None]
  - PRURITUS [None]
  - LOWER RESPIRATORY TRACT INFECTION [None]
